FAERS Safety Report 8967715 (Version 1)
Quarter: 2012Q4

REPORT INFORMATION
  Report Type: Spontaneous
  Country: JP (occurrence: None)
  Receive Date: 20121207
  Receipt Date: 20121207
  Transmission Date: 20130627
  Serious: Yes (Other)
  Sender: FDA-Public Use
  Company Number: 2012P1066156

PATIENT
  Age: 65 Year
  Sex: Male

DRUGS (12)
  1. ETHAMBUTOL [Suspect]
     Indication: PERICARDITIS TUBERCULOUS
     Dosage: 12/--/1996 - 01/--/19997
     Dates: start: 199612, end: 199701
  2. ETHAMBUTOL [Suspect]
     Indication: PERICARDITIS TUBERCULOUS
     Dosage: 02/--/1997 - 04/07/1997
     Dates: start: 199702, end: 19970307
  3. ETHAMBUTOL [Suspect]
     Indication: PERICARDITIS TUBERCULOUS
     Dosage: 05/15/1997 - 06/04/1997
     Dates: start: 19970515, end: 19970604
  4. ETHAMBUTOL [Suspect]
     Indication: PERICARDITIS TUBERCULOUS
     Dosage: 10/--/2011 - UNKNOWN
     Dates: start: 201110
  5. ISONIAZID [Suspect]
     Indication: PERICARDITIS TUBERCULOUS
     Dosage: 12/--/1996 - 01/--/1997
     Dates: start: 199612, end: 199701
  6. ISONIAZID [Suspect]
     Indication: PERICARDITIS TUBERCULOUS
     Dosage: 02/--/1997 - 04/07/1997
     Dates: start: 199702, end: 19970407
  7. ISONIAZID [Suspect]
     Indication: PERICARDITIS TUBERCULOUS
     Dosage: 07/14/1997 - 07/--/1997
     Dates: start: 19970714, end: 199707
  8. ISONIAZID [Suspect]
     Indication: PERICARDITIS TUBERCULOUS
     Dosage: 10/--/2011  -  UNKNOWN
     Dates: start: 201110
  9. LEVOFLOXACIN [Suspect]
     Indication: PERICARDITIS TUBERCULOUS
     Dosage: 02/--/1997  -  04/07/1997
     Dates: start: 199702, end: 19970407
  10. LEVOFLOXACIN [Suspect]
     Indication: PERICARDITIS TUBERCULOUS
     Dosage: 06/03/1997  -  06/04/1997
     Dates: start: 19970603, end: 19970604
  11. RIFAMPICIN  (NO PREF.  NAME) [Suspect]
     Indication: PERICARDITIS TUBERCULOUS
     Dosage: 12/--/1996  -  01/--/1997
     Dates: start: 199612, end: 199701
  12. RIFAMPICIN  (NO PREF.  NAME) [Suspect]
     Indication: PERICARDITIS TUBERCULOUS
     Dosage: 02/--/1997  -  04/07/1997
     Dates: start: 199702, end: 19970407

REACTIONS (5)
  - Aspartate aminotransferase increased [None]
  - Alanine aminotransferase increased [None]
  - Hyperuricaemia [None]
  - Pulmonary tuberculosis [None]
  - Drug reaction with eosinophilia and systemic symptoms [None]
